FAERS Safety Report 5484364-6 (Version None)
Quarter: 2007Q4

REPORT INFORMATION
  Report Type: 
  Country: None (occurrence: None)
  Receive Date: 20071010
  Receipt Date: 20071002
  Transmission Date: 20080405
  Serious: Yes (Death, Hospitalization)
  Sender: FDA-Public Use
  Company Number: APP200700269

PATIENT
  Age: 37 Year
  Sex: Female

DRUGS (5)
  1. FLUOROURACIL [Suspect]
     Indication: COLON CANCER
     Dosage: (425 MG/M2, DAYS 1-5 FOR 6 CYCLES), INTRAVENOUS
     Route: 042
  2. GLIPIZIDE (PANTOPRAZOLE) [Concomitant]
  3. PANTOPRAZOLE SODIUM [Concomitant]
  4. IRBESARTAN [Concomitant]
  5. HYDROCHLOROTHIAZIDE [Concomitant]

REACTIONS (2)
  - BRONCHIOLITIS [None]
  - TACHYCARDIA [None]
